FAERS Safety Report 9580138 (Version 1)
Quarter: 2013Q3

REPORT INFORMATION
  Report Type: Spontaneous
  Country: US (occurrence: None)
  Receive Date: 20130916
  Receipt Date: 20130916
  Transmission Date: 20140515
  Serious: Yes (Other)
  Sender: FDA-Public Use
  Company Number: JPI-P-030232

PATIENT
  Age: 65 Year
  Sex: Female
  Weight: 57.15 kg

DRUGS (2)
  1. XYREM [Suspect]
     Indication: CATAPLEXY
     Route: 048
     Dates: start: 20121228
  2. INSULIN [Concomitant]

REACTIONS (6)
  - Blood pressure increased [None]
  - Blood glucose increased [None]
  - Dry mouth [None]
  - Oedema peripheral [None]
  - Oedema peripheral [None]
  - Oedema peripheral [None]
